FAERS Safety Report 20394799 (Version 7)
Quarter: 2022Q4

REPORT INFORMATION
  Report Type: Spontaneous
  Country: US (occurrence: US)
  Receive Date: 20220130
  Receipt Date: 20221221
  Transmission Date: 20230113
  Serious: Yes (Other)
  Sender: FDA-Public Use
  Company Number: US-SA-SAC20220127000541

PATIENT
  Sex: Male

DRUGS (1)
  1. DUPIXENT [Suspect]
     Active Substance: DUPILUMAB
     Dosage: UNK
     Route: 058

REACTIONS (13)
  - Rheumatoid arthritis [Unknown]
  - Condition aggravated [Unknown]
  - Arthropathy [Unknown]
  - Tissue injury [Unknown]
  - Skin fissures [Unknown]
  - Skin burning sensation [Unknown]
  - Abdominal pain upper [Unknown]
  - Illness [Unknown]
  - Osteoarthritis [Unknown]
  - Arthritis [Unknown]
  - Arthralgia [Unknown]
  - Injection site erythema [Unknown]
  - Injection site pain [Unknown]
